FAERS Safety Report 12740693 (Version 1)
Quarter: 2016Q3

REPORT INFORMATION
  Report Type: Report from Study
  Country: US (occurrence: US)
  Receive Date: 20160914
  Receipt Date: 20160914
  Transmission Date: 20161109
  Serious: Yes (Other)
  Sender: FDA-Public Use
  Company Number: US-ROCHE-1828658

PATIENT
  Age: 67 Year
  Sex: Male
  Weight: 61.8 kg

DRUGS (18)
  1. TEMSIROLIMUS [Suspect]
     Active Substance: TEMSIROLIMUS
     Dosage: COURSE 8
     Route: 042
     Dates: start: 20100803
  2. BEVACIZUMAB [Suspect]
     Active Substance: BEVACIZUMAB
     Indication: CARCINOID TUMOUR
     Dosage: COURSE 1
     Route: 042
     Dates: start: 20100118
  3. BEVACIZUMAB [Suspect]
     Active Substance: BEVACIZUMAB
     Dosage: COURSE 6
     Route: 042
     Dates: start: 20100607
  4. TEMSIROLIMUS [Suspect]
     Active Substance: TEMSIROLIMUS
     Dosage: COURSE 5
     Route: 042
     Dates: start: 20100510
  5. BEVACIZUMAB [Suspect]
     Active Substance: BEVACIZUMAB
     Dosage: COURSE 3
     Route: 042
     Dates: start: 20100315
  6. BEVACIZUMAB [Suspect]
     Active Substance: BEVACIZUMAB
     Dosage: COURSE 2
     Route: 042
     Dates: start: 20100215
  7. BEVACIZUMAB [Suspect]
     Active Substance: BEVACIZUMAB
     Dosage: COURSE 4
     Route: 042
     Dates: start: 20100412
  8. BEVACIZUMAB [Suspect]
     Active Substance: BEVACIZUMAB
     Dosage: COURSE 7
     Route: 042
     Dates: start: 20100706
  9. BEVACIZUMAB [Suspect]
     Active Substance: BEVACIZUMAB
     Dosage: COURSE 8
     Route: 042
     Dates: start: 20100803
  10. TEMSIROLIMUS [Suspect]
     Active Substance: TEMSIROLIMUS
     Dosage: COURSE 2
     Route: 042
     Dates: start: 20100215
  11. TEMSIROLIMUS [Suspect]
     Active Substance: TEMSIROLIMUS
     Dosage: COURSE 3
     Route: 042
     Dates: start: 20100315
  12. TEMSIROLIMUS [Suspect]
     Active Substance: TEMSIROLIMUS
     Dosage: COURSE 4
     Route: 042
     Dates: start: 20100412
  13. TEMSIROLIMUS [Suspect]
     Active Substance: TEMSIROLIMUS
     Dosage: COURSE 6
     Route: 042
     Dates: start: 20100607
  14. TEMSIROLIMUS [Suspect]
     Active Substance: TEMSIROLIMUS
     Dosage: COURSE 7
     Route: 042
     Dates: start: 20100706
  15. BEVACIZUMAB [Suspect]
     Active Substance: BEVACIZUMAB
     Dosage: COURSE 5
     Route: 042
     Dates: start: 20100510
  16. TEMSIROLIMUS [Suspect]
     Active Substance: TEMSIROLIMUS
     Indication: CARCINOID TUMOUR
     Dosage: COURSE 1
     Route: 042
     Dates: start: 20100118
  17. BEVACIZUMAB [Suspect]
     Active Substance: BEVACIZUMAB
     Dosage: COURSE 9
     Route: 042
     Dates: start: 20100831
  18. TEMSIROLIMUS [Suspect]
     Active Substance: TEMSIROLIMUS
     Dosage: COURSE 9
     Route: 042
     Dates: start: 20100831

REACTIONS (1)
  - Blood bilirubin increased [Unknown]
